FAERS Safety Report 11441395 (Version 1)
Quarter: 2015Q3

REPORT INFORMATION
  Report Type: Spontaneous
  Country: US (occurrence: US)
  Receive Date: 20150821
  Receipt Date: 20150821
  Transmission Date: 20151125
  Serious: No
  Sender: FDA-Public Use
  Company Number: US-ELI_LILLY_AND_COMPANY-US200807001671

PATIENT
  Age: 48 Year

DRUGS (2)
  1. FENTANYL. [Concomitant]
     Active Substance: FENTANYL
     Dosage: 75 UG, EVERY HOUR
  2. CYMBALTA [Suspect]
     Active Substance: DULOXETINE HYDROCHLORIDE
     Indication: PHANTOM PAIN
     Dosage: 60 MG, UNK
     Dates: start: 200705

REACTIONS (4)
  - Fatigue [Recovered/Resolved]
  - Impaired healing [Recovered/Resolved]
  - Cognitive disorder [Not Recovered/Not Resolved]
  - Hyperhidrosis [Not Recovered/Not Resolved]

NARRATIVE: CASE EVENT DATE: 200712
